FAERS Safety Report 22266098 (Version 1)
Quarter: 2023Q2

REPORT INFORMATION
  Report Type: Spontaneous
  Country: NL (occurrence: NL)
  Receive Date: 20230428
  Receipt Date: 20230428
  Transmission Date: 20230722
  Serious: Yes (Death)
  Sender: FDA-Public Use
  Company Number: None

PATIENT
  Sex: Female
  Weight: 95 kg

DRUGS (5)
  1. LOSARTAN [Suspect]
     Active Substance: LOSARTAN
     Indication: Hypertension
     Dosage: 100 MILLIGRAM DAILY; 1 X PER DAY 1 PIECE, TABLET FO, BRAND NAME NOT SPECIFIED
     Route: 065
     Dates: start: 20170103, end: 20230201
  2. TIOTRUS ZONDA [Concomitant]
     Indication: Product used for unknown indication
     Dosage: 10MCG + ZONDA INHALER
     Route: 065
  3. ALBUTEROL [Concomitant]
     Active Substance: ALBUTEROL
     Indication: Product used for unknown indication
     Dosage: BRAND NAME NOT SPECIFIED
     Route: 065
  4. ESTRIOL [Concomitant]
     Active Substance: ESTRIOL
     Indication: Product used for unknown indication
     Dosage: APPLICATOR
     Route: 065
  5. METOPROLOL SUCCINATE [Concomitant]
     Active Substance: METOPROLOL SUCCINATE
     Indication: Product used for unknown indication
     Dosage: BRAND NAME NOT SPECIFIED
     Route: 065

REACTIONS (2)
  - Laryngeal oedema [Fatal]
  - Rash [Unknown]
